FAERS Safety Report 17750948 (Version 1)
Quarter: 2020Q2

REPORT INFORMATION
  Report Type: Spontaneous
  Country: US (occurrence: US)
  Receive Date: 20200506
  Receipt Date: 20200506
  Transmission Date: 20200714
  Serious: Yes (Other)
  Sender: FDA-Public Use
  Company Number: US-PFIZER INC-2019230686

PATIENT
  Age: 71 Year
  Sex: Female

DRUGS (1)
  1. FLECTOR [Suspect]
     Active Substance: DICLOFENAC EPOLAMINE
     Dosage: 1 TRANSDERMAL PATCH, ONCE A DAY
     Route: 062

REACTIONS (2)
  - Off label use [Unknown]
  - Macular degeneration [Unknown]

NARRATIVE: CASE EVENT DATE: 20180908
